FAERS Safety Report 9324329 (Version 8)
Quarter: 2013Q4

REPORT INFORMATION
  Report Type: Report from Study
  Country: PT (occurrence: PT)
  Receive Date: 20130603
  Receipt Date: 20131022
  Transmission Date: 20140711
  Serious: Yes (Hospitalization, Other)
  Sender: FDA-Public Use
  Company Number: PT-BAXTER-2013BAX019868

PATIENT
  Age: 34 Year
  Sex: Male

DRUGS (7)
  1. EXTRANEAL 75MG/ML - SACO - 5 UNIDADE(S) - 2000 ML [Suspect]
     Indication: RENAL FAILURE CHRONIC
     Route: 033
     Dates: start: 20130226
  2. PHYSIONEAL 40 GLUCOSE 1,36% P/V / 13,6 MG/ML [Suspect]
     Indication: RENAL FAILURE CHRONIC
     Route: 033
     Dates: start: 20130226
  3. MEROPENEM [Concomitant]
     Indication: PSEUDOMONAS INFECTION
     Route: 042
     Dates: start: 20130126
  4. MEROPENEM [Concomitant]
     Indication: CATHETER SITE INFECTION
  5. CEFTAZIDIME [Concomitant]
     Indication: PSEUDOMONAS INFECTION
     Route: 033
     Dates: start: 20130130, end: 20130130
  6. CEFTAZIDIME [Concomitant]
     Indication: CATHETER SITE INFECTION
  7. CEFTAZIDIME [Concomitant]
     Indication: PERITONITIS

REACTIONS (7)
  - Flank pain [Recovered/Resolved]
  - Inflammation [Recovered/Resolved]
  - Abdominal wall disorder [Recovered/Resolved]
  - Abdominal abscess [Recovered/Resolved]
  - Peritonitis bacterial [Recovered/Resolved]
  - Peritonitis [Unknown]
  - Abscess [Unknown]
